FAERS Safety Report 13389720 (Version 1)
Quarter: 2017Q1

REPORT INFORMATION
  Report Type: Spontaneous
  Country: DE (occurrence: DE)
  Receive Date: 20170330
  Receipt Date: 20170330
  Transmission Date: 20170429
  Serious: Yes (Other)
  Sender: FDA-Public Use
  Company Number: DE-SA-2017SA016137

PATIENT
  Age: 35 Year
  Sex: Female
  Weight: 79 kg

DRUGS (1)
  1. AUBAGIO [Suspect]
     Active Substance: TERIFLUNOMIDE
     Indication: MULTIPLE SCLEROSIS
     Route: 048
     Dates: start: 20170102, end: 20170127

REACTIONS (19)
  - Lip swelling [Recovering/Resolving]
  - Mucosal inflammation [Recovering/Resolving]
  - Angioedema [Recovering/Resolving]
  - Chapped lips [Recovering/Resolving]
  - Oral pain [Recovering/Resolving]
  - Pain of skin [Recovering/Resolving]
  - Rhinitis [Recovering/Resolving]
  - Burning sensation [Recovering/Resolving]
  - Sneezing [Recovering/Resolving]
  - Oedema [Recovered/Resolved]
  - Rhinalgia [Recovering/Resolving]
  - Eosinophil count decreased [Unknown]
  - Arthralgia [Recovering/Resolving]
  - White blood cell count decreased [Unknown]
  - Pruritus [Recovering/Resolving]
  - Eyelid oedema [Recovering/Resolving]
  - Rash [Recovered/Resolved]
  - Cheilitis [Recovering/Resolving]
  - Rhinorrhoea [Recovering/Resolving]

NARRATIVE: CASE EVENT DATE: 201701
